FAERS Safety Report 5265820-2 (Version None)
Quarter: 2007Q1

REPORT INFORMATION
  Report Type: 
  Country: None (occurrence: None)
  Receive Date: 20070313
  Receipt Date: 20070313
  Transmission Date: 20070707
  Serious: Yes (Hospitalization, Other)
  Sender: FDA-Public Use
  Company Number: None

PATIENT
  Age: 21 Year
  Sex: Female
  Weight: 49.8957 kg

DRUGS (1)
  1. GUAIFENEX 120 MG [Suspect]
     Dosage: 120 MG 2X/DAY PO
     Route: 048
     Dates: start: 20070302, end: 20070308

REACTIONS (19)
  - ANOREXIA [None]
  - ANXIETY [None]
  - APATHY [None]
  - CONFUSIONAL STATE [None]
  - DEPRESSION [None]
  - DISTURBANCE IN ATTENTION [None]
  - EMOTIONAL DISORDER [None]
  - FEAR [None]
  - FEELING ABNORMAL [None]
  - FLAT AFFECT [None]
  - HEART RATE INCREASED [None]
  - HYPOAESTHESIA [None]
  - MENTAL DISORDER [None]
  - MOOD ALTERED [None]
  - NERVOUSNESS [None]
  - PANIC ATTACK [None]
  - SOCIAL AVOIDANT BEHAVIOUR [None]
  - SUICIDAL IDEATION [None]
  - TREMOR [None]
